FAERS Safety Report 5260989-8 (Version None)
Quarter: 2007Q1

REPORT INFORMATION
  Report Type: 
  Country: None (occurrence: None)
  Receive Date: 20070309
  Receipt Date: 20070228
  Transmission Date: 20070707
  Serious: Yes (Hospitalization)
  Sender: FDA-Public Use
  Company Number: PL-ABBOTT-07P-129-0360499-00

PATIENT
  Sex: Female
  Weight: 54 kg

DRUGS (6)
  1. KLACID [Suspect]
     Indication: DRUG USE FOR UNKNOWN INDICATION
  2. PERFALGAN [Suspect]
     Indication: PYREXIA
     Dosage: UP TO 2 GRAMS PER DAY
     Route: 042
     Dates: start: 20061213, end: 20061216
  3. DIAZEPAM [Suspect]
     Indication: DRUG USE FOR UNKNOWN INDICATION
  4. BACTRIM [Suspect]
     Indication: DRUG USE FOR UNKNOWN INDICATION
     Route: 048
  5. CIPROFLOXACIN [Suspect]
     Indication: DRUG USE FOR UNKNOWN INDICATION
  6. CYCLOSPORINE [Suspect]
     Indication: DRUG USE FOR UNKNOWN INDICATION
     Route: 048

REACTIONS (5)
  - ALANINE AMINOTRANSFERASE INCREASED [None]
  - HYPERBILIRUBINAEMIA [None]
  - IMMUNOSUPPRESSANT DRUG LEVEL INCREASED [None]
  - PYREXIA [None]
  - URINE KETONE BODY PRESENT [None]
